FAERS Safety Report 5526292-3 (Version None)
Quarter: 2007Q4

REPORT INFORMATION
  Report Type: 
  Country: None (occurrence: None)
  Receive Date: 20071121
  Receipt Date: 20071121
  Transmission Date: 20080405
  Serious: Yes (Hospitalization)
  Sender: FDA-Public Use
  Company Number: None

PATIENT
  Sex: Male
  Weight: 13.2 kg

DRUGS (7)
  1. CAMPTOSAR [Suspect]
     Dosage: 250 MG
  2. TEMOZOLOMIDE [Suspect]
     Dosage: 350 MG
  3. VINCRISTINE SULFATE [Suspect]
     Dosage: .85 MG
  4. BACTRIM [Concomitant]
  5. CEFEPIME [Concomitant]
  6. SCOPOLAMINE TRANSDERMAL PATCH [Concomitant]
  7. MORPHINE [Concomitant]

REACTIONS (7)
  - ASCITES [None]
  - BLADDER OBSTRUCTION [None]
  - INTESTINAL OBSTRUCTION [None]
  - NEOPLASM PROGRESSION [None]
  - PANCYTOPENIA [None]
  - PYREXIA [None]
  - RESPIRATORY DISTRESS [None]
